FAERS Safety Report 9440575 (Version 5)
Quarter: 2013Q3

REPORT INFORMATION
  Report Type: Spontaneous
  Country: US (occurrence: US)
  Receive Date: 20130805
  Receipt Date: 20130910
  Transmission Date: 20140515
  Serious: Yes (Other)
  Sender: FDA-Public Use
  Company Number: US-JNJFOC-20130715945

PATIENT
  Sex: 0

DRUGS (6)
  1. INFLIXIMAB, RECOMBINANT [Suspect]
     Indication: RHEUMATOID ARTHRITIS
     Route: 042
  2. INFLIXIMAB, RECOMBINANT [Suspect]
     Indication: PSORIASIS
     Route: 042
  3. INFLIXIMAB, RECOMBINANT [Suspect]
     Indication: ANKYLOSING SPONDYLITIS
     Route: 042
  4. INFLIXIMAB, RECOMBINANT [Suspect]
     Indication: JUVENILE IDIOPATHIC ARTHRITIS
     Route: 042
  5. INFLIXIMAB, RECOMBINANT [Suspect]
     Indication: COLITIS ULCERATIVE
     Route: 042
  6. INFLIXIMAB, RECOMBINANT [Suspect]
     Indication: CROHN^S DISEASE
     Route: 042

REACTIONS (24)
  - Neuropathy peripheral [Unknown]
  - Cerebrovascular disorder [Unknown]
  - Cerebral cyst [Unknown]
  - Monoplegia [Unknown]
  - Central nervous system neoplasm [Unknown]
  - Central nervous system infection [Unknown]
  - Meningitis cryptococcal [Unknown]
  - Encephalopathy [Unknown]
  - Demyelination [Unknown]
  - Optic neuritis [Unknown]
  - VIIth nerve paralysis [Unknown]
  - Myelitis transverse [Unknown]
  - Leukoencephalopathy [Unknown]
  - Meningitis listeria [Unknown]
  - Herpes simplex meningoencephalitis [Unknown]
  - Neuroborreliosis [Unknown]
  - Brain neoplasm [Unknown]
  - Monoparesis [Unknown]
  - Myasthenia gravis [Unknown]
  - Myelopathy [Unknown]
  - Paraplegia [Unknown]
  - Parkinson^s disease [Unknown]
  - Posterior fossa syndrome [Unknown]
  - Quadriplegia [Unknown]
